FAERS Safety Report 9883818 (Version 4)
Quarter: 2014Q2

REPORT INFORMATION
  Report Type: Spontaneous
  Country: JP (occurrence: JP)
  Receive Date: 20140210
  Receipt Date: 20140516
  Transmission Date: 20141212
  Serious: Yes (Other)
  Sender: FDA-Public Use
  Company Number: JP-BAYER-2014-015321

PATIENT
  Age: 64 Year
  Sex: Female
  Weight: 49 kg

DRUGS (8)
  1. STIVARGA [Suspect]
     Indication: COLON CANCER
     Dosage: 160 MG, QD
     Route: 048
     Dates: start: 20140124, end: 20140131
  2. STIVARGA [Suspect]
     Indication: COLON CANCER
     Dosage: 120 MG, QD
     Route: 048
     Dates: start: 20140210, end: 20140217
  3. STIVARGA [Suspect]
     Indication: COLON CANCER
     Dosage: 80 MG, QD
     Route: 048
     Dates: start: 20140224, end: 20140310
  4. GASTER D [Concomitant]
     Indication: PROPHYLAXIS
     Dosage: DAILY DOSE 20 MG
     Route: 048
  5. NORVASC [Concomitant]
     Dosage: DAILY DOSE 5 MG
     Route: 048
  6. CINAL [ASCORBIC ACID,CALCIUM PANTOTHENATE] [Concomitant]
     Indication: PROPHYLAXIS
     Dosage: UNK
     Route: 048
  7. BROTIZOLAM [Concomitant]
     Indication: PROPHYLAXIS
     Dosage: UNK
     Route: 048
  8. PASTARON [Concomitant]
     Dosage: UNK
     Route: 061

REACTIONS (7)
  - Gallbladder enlargement [Recovered/Resolved]
  - Gallbladder disorder [Recovered/Resolved]
  - Blood bilirubin increased [Recovered/Resolved]
  - Pyrexia [Not Recovered/Not Resolved]
  - Platelet count decreased [Recovered/Resolved]
  - Palmar-plantar erythrodysaesthesia syndrome [Recovering/Resolving]
  - Dysphonia [Not Recovered/Not Resolved]
